FAERS Safety Report 9331622 (Version 1)
Quarter: 2013Q2

REPORT INFORMATION
  Report Type: Spontaneous
  Country: US (occurrence: None)
  Receive Date: 20130603
  Receipt Date: 20130603
  Transmission Date: 20140414
  Serious: Yes (Death)
  Sender: FDA-Public Use
  Company Number: UTC-033336

PATIENT
  Age: 54 Year
  Sex: Female

DRUGS (4)
  1. REMODULIN (5 MILLIGRAM/MILLILITERS, INJECTION FOR INFUSION) (TREPROSTINIL SODIUM) [Suspect]
     Indication: COR PULMONALE CHRONIC
     Dosage: (0.063 UG/KG,1 IN 1 MIN)
     Route: 058
     Dates: start: 20130220
  2. SPIRONOLACTONE (UNKNOWN) [Concomitant]
  3. FUROSEMDIE (UNKNOWN) [Concomitant]
  4. XANAX (ALPRAZOLAM) (UNKNOWN) [Concomitant]

REACTIONS (3)
  - Fall [None]
  - Drug dose omission [None]
  - Incorrect dose administered [None]
